FAERS Safety Report 4352110-5 (Version None)
Quarter: 2004Q2

REPORT INFORMATION
  Report Type: 
  Country: None (occurrence: None)
  Receive Date: 20040428
  Receipt Date: 20040419
  Transmission Date: 20050107
  Serious: Yes (Other)
  Sender: FDA-Public Use
  Company Number: HQWYE533720APR04

PATIENT

DRUGS (1)
  1. CORDARONE [Suspect]
     Dosage: INTRAVENOUS
     Route: 042

REACTIONS (2)
  - CHEMICAL INJURY [None]
  - EXTRAVASATION [None]
